FAERS Safety Report 19454450 (Version 3)
Quarter: 2021Q4

REPORT INFORMATION
  Report Type: Spontaneous
  Country: JP (occurrence: JP)
  Receive Date: 20210623
  Receipt Date: 20211122
  Transmission Date: 20220303
  Serious: Yes (Death, Other)
  Sender: FDA-Public Use
  Company Number: JP-MSD-M2021-14309

PATIENT
  Age: 49 Year
  Sex: Female

DRUGS (5)
  1. NOXAFIL [Suspect]
     Active Substance: POSACONAZOLE
     Indication: Antifungal prophylaxis
     Dosage: 300 MILLIGRAM, QD
     Route: 048
     Dates: start: 20210423, end: 20210623
  2. VORICONAZOLE [Concomitant]
     Active Substance: VORICONAZOLE
     Indication: Prophylaxis
     Dosage: UNK
     Route: 065
  3. AMBISOME [Concomitant]
     Active Substance: AMPHOTERICIN B
     Indication: Aspergillus infection
     Dosage: UNK
     Route: 065
  4. TACROLIMUS [Concomitant]
     Active Substance: TACROLIMUS
     Indication: Graft versus host disease
     Dosage: UNK
     Route: 065
  5. THYMOGLOBULINE [Concomitant]
     Active Substance: LAPINE T-LYMPHOCYTE IMMUNE GLOBULIN
     Indication: Graft versus host disease
     Dosage: UNK
     Route: 065

REACTIONS (4)
  - Graft versus host disease [Fatal]
  - Thrombotic microangiopathy [Fatal]
  - Infection [Unknown]
  - Drug ineffective [Unknown]

NARRATIVE: CASE EVENT DATE: 20210101
